FAERS Safety Report 9616774 (Version 1)
Quarter: 2013Q4

REPORT INFORMATION
  Report Type: Spontaneous
  Country: FR (occurrence: FR)
  Receive Date: 20131011
  Receipt Date: 20131011
  Transmission Date: 20140711
  Serious: Yes (Other)
  Sender: FDA-Public Use
  Company Number: FR-JNJFOC-20131007048

PATIENT
  Age: 80 Year
  Sex: Female

DRUGS (5)
  1. IXPRIM [Suspect]
     Indication: BACK PAIN
     Route: 048
     Dates: start: 200611, end: 201308
  2. EFFERALGAN CODEINE [Suspect]
     Indication: BACK PAIN
     Route: 048
     Dates: start: 200611, end: 201308
  3. DAFALGAN CODEINE [Suspect]
     Indication: BACK PAIN
     Route: 048
     Dates: start: 200611, end: 201308
  4. IBUPROFENE [Concomitant]
     Indication: BACK PAIN
     Route: 048
     Dates: start: 200611
  5. DI-ANTALVIC [Concomitant]
     Indication: BACK PAIN
     Route: 065
     Dates: start: 200607, end: 20061111

REACTIONS (5)
  - Eye burns [Not Recovered/Not Resolved]
  - Dry eye [Not Recovered/Not Resolved]
  - Constipation [Not Recovered/Not Resolved]
  - Vision blurred [Unknown]
  - Miosis [Unknown]
